FAERS Safety Report 4963660-2 (Version None)
Quarter: 2006Q1

REPORT INFORMATION
  Report Type: 
  Country: None (occurrence: None)
  Receive Date: 20060330
  Receipt Date: 20060322
  Transmission Date: 20060701
  Serious: Yes (Hospitalization)
  Sender: FDA-Public Use
  Company Number: 200610067BNE

PATIENT
  Age: 69 Year
  Sex: Female
  Weight: 67 kg

DRUGS (19)
  1. SORAFENIB [Suspect]
     Dosage: ORAL
     Route: 048
     Dates: start: 20060106, end: 20060131
  2. CARBOPLATIN [Suspect]
     Dosage: INTRAVENOUS
     Route: 042
     Dates: start: 20060105
  3. PACLITAXEL [Suspect]
     Dosage: INTRAVENOUS
     Route: 042
     Dates: start: 20060105
  4. CYCLIZINE [Concomitant]
  5. DOMPERIDONE [Concomitant]
  6. DICLOFENAC SODIUM [Concomitant]
  7. LANSOPRAZOLE [Concomitant]
  8. MST [Concomitant]
  9. CO-DANTHRAMER [Concomitant]
  10. TRAMADOL [Concomitant]
  11. OROMORPH [Concomitant]
  12. LOPERAMIDE [Concomitant]
  13. SODIUM DOCUSATE [Concomitant]
  14. LEVOFLOXACIN [Concomitant]
  15. NYSTATIN [Concomitant]
  16. SALBUTAMOL [Concomitant]
  17. LACTULOSE [Concomitant]
  18. HYDROLAX [Concomitant]
  19. BLOOD TRANSFUSION [Concomitant]

REACTIONS (2)
  - LOWER RESPIRATORY TRACT INFECTION [None]
  - NEUTROPENIC SEPSIS [None]
